FAERS Safety Report 14310172 (Version 2)
Quarter: 2018Q1

REPORT INFORMATION
  Report Type: Report from Study
  Country: US (occurrence: US)
  Receive Date: 20171220
  Receipt Date: 20180214
  Transmission Date: 20180509
  Serious: No
  Sender: FDA-Public Use
  Company Number: US-ALEXION PHARMACEUTICALS INC.-A201714177

PATIENT
  Age: 8 Year
  Sex: Female

DRUGS (3)
  1. STRENSIQ [Suspect]
     Active Substance: ASFOTASE ALFA
     Dosage: UNK
     Route: 058
     Dates: start: 20171204
  2. STRENSIQ [Suspect]
     Active Substance: ASFOTASE ALFA
     Indication: OFF LABEL USE
     Dosage: 40 MG, TIW
     Route: 058
     Dates: start: 20171115
  3. STRENSIQ [Suspect]
     Active Substance: ASFOTASE ALFA
     Indication: PHOSPHORUS METABOLISM DISORDER
     Dosage: UNK
     Route: 058
     Dates: start: 20151123

REACTIONS (2)
  - Tooth disorder [Unknown]
  - Off label use [Unknown]

NARRATIVE: CASE EVENT DATE: 20171127
